FAERS Safety Report 10231846 (Version 1)
Quarter: 2014Q2

REPORT INFORMATION
  Report Type: Spontaneous
  Country: SE (occurrence: SE)
  Receive Date: 20140612
  Receipt Date: 20140612
  Transmission Date: 20141212
  Serious: Yes (Other)
  Sender: FDA-Public Use
  Company Number: SE-BEH-2014043115

PATIENT
  Sex: 0

DRUGS (3)
  1. IVIG [Suspect]
     Indication: CHRONIC INFLAMMATORY DEMYELINATING POLYRADICULONEUROPATHY
  2. PREDNISOLONE [Concomitant]
     Route: 048
  3. METHYLPREDNISOLONE [Concomitant]
     Route: 042

REACTIONS (1)
  - Embolism [Unknown]
